FAERS Safety Report 7310761-X (Version None)
Quarter: 2011Q1

REPORT INFORMATION
  Report Type: 
  Country: None (occurrence: None)
  Receive Date: 20110224
  Receipt Date: 20110209
  Transmission Date: 20110831
  Serious: No
  Sender: FDA-Public Use
  Company Number: US-PFIZER INC-US-WYE-H17491810

PATIENT
  Sex: Female

DRUGS (3)
  1. PRISTIQ [Suspect]
     Dosage: ^CUT BACK TO 1/4 PILL OF PRISTIQ^
     Route: 065
     Dates: start: 20100101
  2. ASCORBIC ACID [Concomitant]
  3. PRISTIQ [Suspect]
     Indication: ANXIETY
     Dosage: 50.0 MG, 1X/DAY
     Route: 065
     Dates: start: 20100101, end: 20100101

REACTIONS (5)
  - CONSTIPATION [None]
  - THERAPEUTIC RESPONSE UNEXPECTED [None]
  - INTENTIONAL DRUG MISUSE [None]
  - HEADACHE [None]
  - NAUSEA [None]
